FAERS Safety Report 18467694 (Version 1)
Quarter: 2020Q4

REPORT INFORMATION
  Report Type: Spontaneous
  Country: US (occurrence: US)
  Receive Date: 20201104
  Receipt Date: 20201104
  Transmission Date: 20210114
  Serious: No
  Sender: FDA-Public Use
  Company Number: None

PATIENT
  Age: 66 Year
  Sex: Male

DRUGS (1)
  1. BUPRENORPHINE/NALOXONE (BUPRENORPHINE HCL 2MG/NALOXONE HCL 0.5MG TAB , [Suspect]
     Active Substance: BUPRENORPHINE\NALOXONE
     Route: 048
     Dates: start: 20200813, end: 20200813

REACTIONS (5)
  - Nausea [None]
  - Dizziness [None]
  - Vomiting [None]
  - Pruritus [None]
  - Rash [None]

NARRATIVE: CASE EVENT DATE: 20200813
